FAERS Safety Report 5758401-5 (Version None)
Quarter: 2008Q2

REPORT INFORMATION
  Report Type: 
  Country: None (occurrence: None)
  Receive Date: 20080603
  Receipt Date: 20080603
  Transmission Date: 20081010
  Serious: Yes (Hospitalization)
  Sender: FDA-Public Use
  Company Number: None

PATIENT
  Age: 47 Year
  Sex: Female
  Weight: 88.4514 kg

DRUGS (1)
  1. LEVAQUIN [Suspect]
     Indication: PNEUMONIA
     Dosage: ONE TABLET ONCE DAILY PO
     Route: 048
     Dates: start: 20080218, end: 20080228

REACTIONS (4)
  - ARTHRITIS [None]
  - DRUG HYPERSENSITIVITY [None]
  - OEDEMA PERIPHERAL [None]
  - TENDONITIS [None]
